FAERS Safety Report 6822099-5 (Version None)
Quarter: 2010Q3

REPORT INFORMATION
  Report Type: 
  Country: None (occurrence: None)
  Receive Date: 20100706
  Receipt Date: 20100624
  Transmission Date: 20110219
  Serious: Yes (Life-Threatening, Hospitalization)
  Sender: FDA-Public Use
  Company Number: 2010MA000187

PATIENT
  Age: 62 Year
  Sex: Female

DRUGS (1)
  1. AMLODIPINE BESYLATE [Suspect]
     Indication: HYPERTENSION
     Dosage: 5 MG;QD;PO
     Route: 048
     Dates: start: 20100601, end: 20100614

REACTIONS (4)
  - ANGINA PECTORIS [None]
  - EMBOLISM ARTERIAL [None]
  - MUSCLE SPASMS [None]
  - PAIN IN EXTREMITY [None]
